FAERS Safety Report 7126250-1 (Version None)
Quarter: 2010Q4

REPORT INFORMATION
  Report Type: 
  Country: None (occurrence: None)
  Receive Date: 20101129
  Receipt Date: 20101124
  Transmission Date: 20110411
  Serious: Yes (Death, Hospitalization)
  Sender: FDA-Public Use
  Company Number: US-BRISTOL-MYERS SQUIBB COMPANY-15401789

PATIENT
  Age: 60 Year
  Sex: Male

DRUGS (1)
  1. METFORMIN HCL [Suspect]
     Dosage: ESTIMATED TO REMOVED 305MG METFORMIN IN 15000 ML DIALYSATE.

REACTIONS (3)
  - BLOOD LACTIC ACID INCREASED [None]
  - HYPOTENSION [None]
  - RENAL FAILURE ACUTE [None]
